FAERS Safety Report 9892576 (Version 1)
Quarter: 2014Q1

REPORT INFORMATION
  Report Type: Spontaneous
  Country: US (occurrence: US)
  Receive Date: 20140212
  Receipt Date: 20140212
  Transmission Date: 20141002
  Serious: No
  Sender: FDA-Public Use
  Company Number: US-GILEAD-2014-0093868

PATIENT
  Sex: Male

DRUGS (2)
  1. SOVALDI [Suspect]
     Indication: CHRONIC HEPATITIS C
     Dosage: 400 MG, UNK
     Route: 065
     Dates: start: 20131228
  2. RIBAVIRIN [Suspect]
     Indication: CHRONIC HEPATITIS C
     Dosage: UNK, BID
     Route: 065

REACTIONS (8)
  - Urticaria [Unknown]
  - Affect lability [Unknown]
  - Neck pain [Unknown]
  - Rash [Unknown]
  - Headache [Unknown]
  - Decreased appetite [Unknown]
  - Dizziness [Unknown]
  - Pruritus [Unknown]
